FAERS Safety Report 15281678 (Version 1)
Quarter: 2018Q3

REPORT INFORMATION
  Report Type: Spontaneous
  Country: JP (occurrence: JP)
  Receive Date: 20180815
  Receipt Date: 20180815
  Transmission Date: 20181010
  Serious: Yes (Other)
  Sender: FDA-Public Use
  Company Number: JP-BAYER-2018-118553

PATIENT
  Age: 69 Year
  Sex: Male
  Weight: 60.5 kg

DRUGS (10)
  1. AMLODIPINE [Concomitant]
     Active Substance: AMLODIPINE BESYLATE
     Dosage: DAILY DOSE 10 MG
     Route: 048
  2. STIVARGA [Suspect]
     Active Substance: REGORAFENIB
     Indication: COLORECTAL CANCER RECURRENT
     Dosage: 120 MG, QD, 3 WEEKS ON 1 WEEK OFF
     Route: 048
     Dates: start: 20180705, end: 20180718
  3. STIVARGA [Suspect]
     Active Substance: REGORAFENIB
     Indication: COLORECTAL CANCER RECURRENT
     Dosage: 160 MG, QD, 3 WEEKS ON 1 WEEK OFF
     Route: 048
     Dates: start: 20180530, end: 20180612
  4. MICARDIS [Concomitant]
     Active Substance: TELMISARTAN
     Dosage: DAILY DOSE 80 MG
     Route: 048
  5. STIVARGA [Suspect]
     Active Substance: REGORAFENIB
     Indication: COLORECTAL CANCER RECURRENT
     Dosage: 80 MG, QD, 3 WEEKS ON 1 WEEK OFF
     Route: 048
     Dates: start: 20180802
  6. INNOLET 30R [Concomitant]
     Active Substance: INSULIN NOS
     Dosage: DAILY DOSE 16 IU
  7. PLAVIX [Concomitant]
     Active Substance: CLOPIDOGREL BISULFATE
     Dosage: DAILY DOSE 75 MG
     Route: 048
  8. SYAKUYAKUKANZOTO [Concomitant]
     Active Substance: UNSPECIFIED INGREDIENT
     Dosage: DAILY DOSE 2.5 G
     Route: 048
  9. GLACTIV [Concomitant]
     Active Substance: SITAGLIPTIN
     Dosage: DAILY DOSE 100 MG
     Route: 048
  10. CRESTOR [Concomitant]
     Active Substance: ROSUVASTATIN CALCIUM
     Dosage: DAILY DOSE 2.5 MG
     Route: 048

REACTIONS (10)
  - Atrial fibrillation [None]
  - Blister [Recovering/Resolving]
  - Hypothyroidism [Not Recovered/Not Resolved]
  - Face oedema [Recovering/Resolving]
  - Palmar-plantar erythrodysaesthesia syndrome [Recovering/Resolving]
  - Decreased appetite [None]
  - Hepatic function abnormal [None]
  - Malaise [None]
  - Pain in extremity [Recovering/Resolving]
  - Platelet count decreased [Recovered/Resolved]

NARRATIVE: CASE EVENT DATE: 20180613
